FAERS Safety Report 4278107-1 (Version None)
Quarter: 2004Q1

REPORT INFORMATION
  Report Type: 
  Country: None (occurrence: None)
  Receive Date: 20040123
  Receipt Date: 20040109
  Transmission Date: 20041129
  Serious: Yes (Hospitalization)
  Sender: FDA-Public Use
  Company Number: WAES 0401TUR00001

PATIENT
  Age: 52 Year
  Sex: Female

DRUGS (5)
  1. AMLODIPINE MALEATE [Concomitant]
  2. DIURETIC (UNSPECIFIED) [Concomitant]
  3. HYZAAR [Concomitant]
     Indication: HYPERTENSION
     Route: 048
  4. HYZAAR [Concomitant]
     Route: 048
  5. COZAAR [Suspect]
     Indication: HYPERTENSION
     Route: 048

REACTIONS (11)
  - ACCELERATED HYPERTENSION [None]
  - ANURIA [None]
  - BLOOD CHOLESTEROL INCREASED [None]
  - DIARRHOEA [None]
  - HYPERVOLAEMIA [None]
  - PULMONARY CONGESTION [None]
  - PULMONARY OEDEMA [None]
  - RENAL ARTERY THROMBOSIS [None]
  - RENAL FAILURE ACUTE [None]
  - RETINOPATHY HYPERTENSIVE [None]
  - VENOUS PRESSURE JUGULAR DECREASED [None]
